FAERS Safety Report 7602574-6 (Version None)
Quarter: 2011Q2

REPORT INFORMATION
  Report Type: 
  Country: None (occurrence: None)
  Receive Date: 20110630
  Receipt Date: 20110624
  Transmission Date: 20111010
  Serious: Yes (Other)
  Sender: FDA-Public Use
  Company Number: DSA_45485_2011

PATIENT
  Sex: Female
  Weight: 65.7716 kg

DRUGS (8)
  1. MYSOLINE [Suspect]
     Indication: TREMOR
     Dosage: (50 MG TID ORAL)
     Route: 048
  2. DULCOLAX [Concomitant]
  3. MOTRIN [Concomitant]
  4. XENAZINE [Suspect]
     Indication: HUNTINGTON'S DISEASE
     Dosage: (12.5 MG QD ORAL, (12.5 MG BID ORAL), (25 MG BID ORAL)
     Route: 048
     Dates: start: 20110401, end: 20110427
  5. XENAZINE [Suspect]
     Indication: HUNTINGTON'S DISEASE
     Dosage: (12.5 MG QD ORAL, (12.5 MG BID ORAL), (25 MG BID ORAL)
     Route: 048
     Dates: start: 20110404, end: 20110418
  6. XENAZINE [Suspect]
     Indication: HUNTINGTON'S DISEASE
     Dosage: (12.5 MG QD ORAL, (12.5 MG BID ORAL), (25 MG BID ORAL)
     Route: 048
     Dates: start: 20110419, end: 20110401
  7. REMERON [Suspect]
     Indication: DEPRESSION
     Dosage: (30 MG QD AT BEDTIME ORAL)
     Route: 048
  8. MIRALAX /00754501/ [Concomitant]

REACTIONS (10)
  - FEELING OF DESPAIR [None]
  - APATHY [None]
  - DISTURBANCE IN ATTENTION [None]
  - AGGRESSION [None]
  - HUNGER [None]
  - SUICIDAL IDEATION [None]
  - AGITATION [None]
  - DEPRESSION [None]
  - CRYING [None]
  - ANGER [None]
